FAERS Safety Report 8875056 (Version 4)
Quarter: 2013Q2

REPORT INFORMATION
  Report Type: Spontaneous
  Country: US (occurrence: US)
  Receive Date: 20121029
  Receipt Date: 20130628
  Transmission Date: 20140414
  Serious: Yes (Hospitalization)
  Sender: FDA-Public Use
  Company Number: US-PFIZER INC-2012268335

PATIENT
  Age: 82 Year
  Sex: Female
  Weight: 61.22 kg

DRUGS (10)
  1. SUTENT [Suspect]
     Indication: RENAL CELL CARCINOMA
     Dosage: 25 MG, ONCE A DAY
     Route: 048
     Dates: start: 2011
  2. SUTENT [Suspect]
     Dosage: 25 MG, UNK
     Dates: start: 20130322
  3. TOPROL XL [Concomitant]
     Dosage: UNK
  4. ATIVAN [Concomitant]
     Dosage: UNK
  5. AMBIEN [Concomitant]
     Dosage: UNK
  6. REMERON [Concomitant]
     Dosage: UNK
  7. BUSPAR [Concomitant]
     Dosage: UNK
  8. BUSPIRONE HYDROCHLORIDE [Concomitant]
     Dosage: UNK
  9. CENTRUM SILVER ULTRA WOMENS [Concomitant]
     Dosage: UNK
  10. DIOVAN HCT [Concomitant]
     Dosage: UNK

REACTIONS (3)
  - Urinary tract infection [Unknown]
  - Diarrhoea [Not Recovered/Not Resolved]
  - Feeling abnormal [Not Recovered/Not Resolved]
